FAERS Safety Report 8620367-8 (Version None)
Quarter: 2012Q3

REPORT INFORMATION
  Report Type: 
  Country: None (occurrence: None)
  Receive Date: 20120824
  Receipt Date: 20120817
  Transmission Date: 20120928
  Serious: Yes (Disabling)
  Sender: FDA-Public Use
  Company Number: US-GLAXOSMITHKLINE-A0990083A

PATIENT
  Age: 63 Year
  Sex: Female

DRUGS (2)
  1. UNKNOWN [Concomitant]
  2. LAMICTAL [Suspect]
     Indication: BIPOLAR DISORDER
     Dosage: 100MG PER DAY
     Route: 065
     Dates: start: 20120101

REACTIONS (5)
  - EYE MOVEMENT DISORDER [None]
  - DIPLOPIA [None]
  - ACTIVITIES OF DAILY LIVING IMPAIRED [None]
  - TOXICITY TO VARIOUS AGENTS [None]
  - IMPAIRED DRIVING ABILITY [None]
